FAERS Safety Report 6072814-6 (Version None)
Quarter: 2009Q1

REPORT INFORMATION
  Report Type: 
  Country: None (occurrence: None)
  Receive Date: 20090210
  Receipt Date: 20090202
  Transmission Date: 20090719
  Serious: Yes (Hospitalization)
  Sender: FDA-Public Use
  Company Number: CA-ABBOTT-09P-028-0501009-00

PATIENT
  Sex: Male
  Weight: 120 kg

DRUGS (1)
  1. HUMIRA [Suspect]
     Indication: PSORIATIC ARTHROPATHY
     Route: 058
     Dates: start: 20080315

REACTIONS (5)
  - ABDOMINAL PAIN [None]
  - BILE DUCT STONE [None]
  - CHOLELITHIASIS [None]
  - MALAISE [None]
  - PANCREATIC ENLARGEMENT [None]
